FAERS Safety Report 15449851 (Version 1)
Quarter: 2018Q3

REPORT INFORMATION
  Report Type: Spontaneous
  Country: US (occurrence: US)
  Receive Date: 20180926
  Receipt Date: 20180926
  Transmission Date: 20181010
  Serious: No
  Sender: FDA-Public Use
  Company Number: None

PATIENT
  Age: 15 Year
  Sex: Male

DRUGS (1)
  1. OXCARBAZEPINE 600MG TABS [Suspect]
     Active Substance: OXCARBAZEPINE
     Indication: SEIZURE
     Route: 048
     Dates: start: 20180904, end: 201809

REACTIONS (4)
  - Product substitution issue [None]
  - Reaction to excipient [None]
  - Thirst [None]
  - Insomnia [None]

NARRATIVE: CASE EVENT DATE: 20180924
